FAERS Safety Report 8943444 (Version 1)
Quarter: 2012Q4

REPORT INFORMATION
  Report Type: 
  Country: FR (occurrence: FR)
  Receive Date: 20121203
  Receipt Date: 20121203
  Transmission Date: 20130627
  Serious: Yes (Hospitalization)
  Sender: FDA-Public Use
  Company Number: FR-TEVA-373329ISR

PATIENT
  Age: 59 Year
  Sex: Female

DRUGS (2)
  1. OXALIPLATINE [Suspect]
     Indication: COLON CANCER
     Dosage: 85 mg/m2 Daily;
     Route: 042
     Dates: start: 20110726, end: 20120216
  2. AVASTIN [Concomitant]
     Dates: start: 20110809

REACTIONS (4)
  - Chills [Recovered/Resolved]
  - Hypotension [Recovered/Resolved]
  - Livedo reticularis [Recovered/Resolved]
  - Hypersensitivity [Recovered/Resolved]
